FAERS Safety Report 6080231-8 (Version None)
Quarter: 2009Q1

REPORT INFORMATION
  Report Type: 
  Country: None (occurrence: None)
  Receive Date: 20090217
  Receipt Date: 20090211
  Transmission Date: 20090719
  Serious: Yes (Other)
  Sender: FDA-Public Use
  Company Number: US-ELI_LILLY_AND_COMPANY-US200812006179

PATIENT
  Sex: Female

DRUGS (5)
  1. HUMALOG MIX 75/25 [Suspect]
     Indication: DIABETES MELLITUS
     Dates: start: 19980101
  2. HUMALOG MIX 75/25 [Suspect]
  3. LASIX [Concomitant]
  4. ASPIRIN [Concomitant]
  5. PRINIVIL [Concomitant]

REACTIONS (6)
  - CATARACT [None]
  - DIABETIC RETINOPATHY [None]
  - EYE HAEMORRHAGE [None]
  - MIGRAINE [None]
  - OCULAR HYPERTENSION [None]
  - VISUAL ACUITY REDUCED [None]
